FAERS Safety Report 4700728-X (Version None)
Quarter: 2005Q2

REPORT INFORMATION
  Report Type: 
  Country: None (occurrence: None)
  Receive Date: 20050627
  Receipt Date: 20050607
  Transmission Date: 20051028
  Serious: Yes (Hospitalization)
  Sender: FDA-Public Use
  Company Number: 2005FR-00011

PATIENT
  Age: 26 Year
  Sex: Female

DRUGS (4)
  1. ACETAMINOPHEN [Suspect]
     Dosage: UNK
     Route: 065
  2. IBUPROFEN [Suspect]
     Dosage: UNK
     Route: 065
  3. CITALOPRAM [Concomitant]
  4. DIAZEPAM [Concomitant]

REACTIONS (4)
  - INTENTIONAL SELF-INJURY [None]
  - LACERATION [None]
  - OVERDOSE [None]
  - SUICIDE ATTEMPT [None]
